FAERS Safety Report 5545879-5 (Version None)
Quarter: 2007Q4

REPORT INFORMATION
  Report Type: 
  Country: None (occurrence: None)
  Receive Date: 20071211
  Receipt Date: 20070823
  Transmission Date: 20080405
  Serious: No
  Sender: FDA-Public Use
  Company Number: US-ASTRAZENECA-2007UW20288

PATIENT
  Sex: Female

DRUGS (2)
  1. SYMBICORT [Suspect]
     Indication: BRONCHITIS
     Route: 055
  2. ADVAIR DISKUS 100/50 [Concomitant]
     Indication: BRONCHITIS

REACTIONS (1)
  - LARYNGITIS [None]
